FAERS Safety Report 6235676-X (Version None)
Quarter: 2009Q2

REPORT INFORMATION
  Report Type: 
  Country: None (occurrence: None)
  Receive Date: 20090616
  Receipt Date: 20090609
  Transmission Date: 20091009
  Serious: Yes (Other)
  Sender: FDA-Public Use
  Company Number: SPV1-2009-01191

PATIENT

DRUGS (1)
  1. VYVANSE [Suspect]

REACTIONS (1)
  - SUICIDAL IDEATION [None]
